FAERS Safety Report 6231203-1 (Version None)
Quarter: 2009Q2

REPORT INFORMATION
  Report Type: 
  Country: None (occurrence: None)
  Receive Date: 20090616
  Receipt Date: 20090608
  Transmission Date: 20091009
  Serious: Yes (Life-Threatening)
  Sender: FDA-Public Use
  Company Number: FR-AVENTIS-200912105FR

PATIENT
  Age: 44 Year
  Sex: Male

DRUGS (6)
  1. AMARYL [Suspect]
     Route: 048
     Dates: end: 20090401
  2. ACTOS [Suspect]
     Route: 048
     Dates: end: 20090401
  3. NEXEN [Suspect]
     Indication: DRUG USE FOR UNKNOWN INDICATION
     Route: 048
  4. COKENZEN [Suspect]
     Route: 048
  5. METFORMIN HCL [Concomitant]
     Route: 048
  6. ZANIDIP [Concomitant]
     Route: 048

REACTIONS (6)
  - ABDOMINAL PAIN [None]
  - ACIDOSIS [None]
  - ANURIA [None]
  - HYPERLACTACIDAEMIA [None]
  - RENAL FAILURE ACUTE [None]
  - VOMITING [None]
